FAERS Safety Report 4834304-5 (Version None)
Quarter: 2005Q4

REPORT INFORMATION
  Report Type: 
  Country: None (occurrence: None)
  Receive Date: 20051122
  Receipt Date: 20051111
  Transmission Date: 20060501
  Serious: Yes (Hospitalization)
  Sender: FDA-Public Use
  Company Number: FR-ROCHE-424509

PATIENT
  Age: 52 Year
  Sex: Female

DRUGS (2)
  1. CAPECITABINE [Suspect]
     Indication: BREAST CANCER METASTATIC
     Dosage: CUMULATIVE DOSE=45600 MG/M2
     Route: 042
     Dates: start: 20041018, end: 20050929
  2. LAPATINIB [Suspect]
     Indication: BREAST CANCER METASTATIC
     Dosage: CUMULATIVE DOSE=30500 MG.
     Route: 048
     Dates: start: 20041018, end: 20050929

REACTIONS (1)
  - ACUTE MYELOID LEUKAEMIA [None]
